FAERS Safety Report 23147958 (Version 9)
Quarter: 2023Q4

REPORT INFORMATION
  Report Type: Report from Study
  Country: CZ (occurrence: None)
  Receive Date: 20231106
  Receipt Date: 20231204
  Transmission Date: 20240109
  Serious: Yes (Death, Hospitalization)
  Sender: FDA-Public Use
  Company Number: CZ-ROCHE-3451092

PATIENT
  Age: 54 Year
  Sex: Female
  Weight: 55 kg

DRUGS (24)
  1. OCRELIZUMAB [Suspect]
     Active Substance: OCRELIZUMAB
     Indication: Multiple sclerosis
     Dosage: MOST RECENT DOSE OF OCRELIZUMAB (603.2 MG) PRIOR TO SAE: 15/SEP/2023, DOSE CONCENTRATION OF LAST OCR
     Route: 042
     Dates: start: 20230323
  2. SUMATRIPTAN [Concomitant]
     Active Substance: SUMATRIPTAN
     Indication: Migraine
     Route: 048
  3. VOLTAREN [Concomitant]
     Active Substance: DICLOFENAC SODIUM
     Indication: Back pain
     Route: 048
  4. NIMESULIDE [Concomitant]
     Active Substance: NIMESULIDE
     Indication: Back pain
     Route: 048
  5. TAMSULOSIN HYDROCHLORIDE [Concomitant]
     Active Substance: TAMSULOSIN HYDROCHLORIDE
     Route: 048
     Dates: start: 20140404
  6. CITALOPRAM HYDROBROMIDE [Concomitant]
     Active Substance: CITALOPRAM HYDROBROMIDE
     Indication: Depression
     Route: 048
     Dates: start: 20140728
  7. ASOLFENA [Concomitant]
     Route: 048
     Dates: start: 20171108
  8. MIRABEGRON [Concomitant]
     Active Substance: MIRABEGRON
     Route: 048
     Dates: start: 20171108
  9. OXYCODONE [Concomitant]
     Active Substance: OXYCODONE
     Indication: Back pain
     Route: 048
     Dates: start: 20181015
  10. OXYCODONE [Concomitant]
     Active Substance: OXYCODONE
     Indication: Radicular pain
  11. NALOXONI HYDROCHLORIDUM [Concomitant]
     Indication: Back pain
     Route: 048
     Dates: start: 20181015
  12. NALOXONI HYDROCHLORIDUM [Concomitant]
     Indication: Radicular pain
  13. NAPROXENUM NATRICUM [Concomitant]
     Indication: Back pain
     Route: 048
     Dates: start: 20200115
  14. NAPROXENUM NATRICUM [Concomitant]
     Indication: Radicular pain
  15. PALEXIA [Concomitant]
     Active Substance: TAPENTADOL HYDROCHLORIDE
     Indication: Back pain
     Route: 048
     Dates: start: 20200716
  16. PALEXIA [Concomitant]
     Active Substance: TAPENTADOL HYDROCHLORIDE
     Indication: Radicular pain
  17. SPASMED (CZECH REPUBLIC) [Concomitant]
     Route: 048
     Dates: start: 20151030
  18. CITALOPRAMI HYDROCHLORIDUM [Concomitant]
     Indication: Depression
     Route: 048
     Dates: start: 20200115
  19. LYRICA [Concomitant]
     Active Substance: PREGABALIN
     Indication: Back pain
     Route: 048
     Dates: start: 20211027
  20. LYRICA [Concomitant]
     Active Substance: PREGABALIN
     Indication: Radicular pain
  21. BACLOFENUM [Concomitant]
     Indication: Muscle spasticity
     Route: 048
     Dates: start: 20211027
  22. PANTOPRAZOLE SODIUM [Concomitant]
     Active Substance: PANTOPRAZOLE SODIUM
     Route: 048
     Dates: start: 20230901
  23. CEFUROXIME AXETIL [Concomitant]
     Active Substance: CEFUROXIME AXETIL
     Indication: Bronchitis
     Route: 048
     Dates: start: 20231006, end: 20231016
  24. OMEPRAZOLE [Concomitant]
     Active Substance: OMEPRAZOLE
     Route: 048
     Dates: start: 20150209, end: 20230830

REACTIONS (2)
  - Encephalitis [Fatal]
  - Myopericarditis [Fatal]

NARRATIVE: CASE EVENT DATE: 20231019
